FAERS Safety Report 9519788 (Version 1)
Quarter: 2013Q1

REPORT INFORMATION
  Report Type: Spontaneous
  Country: US (occurrence: None)
  Receive Date: 20130305
  Receipt Date: 20130305
  Transmission Date: 20140127
  Serious: Yes (Other)
  Sender: FDA-Public Use
  Company Number: 163-21880-12113127

PATIENT
  Sex: Female

DRUGS (5)
  1. REVLIMID [Suspect]
     Indication: PLASMA CELL MYELOMA
     Dosage: 25 MG, 1 IN 1 D, PO
     Route: 048
     Dates: start: 200811
  2. ASA (ACETYLSALICYCLIC ACID) (UNKNOWN) [Concomitant]
  3. GABAPENTIN (GABAPENTIN) (UNKNOWN) (GABAPENTIN) [Concomitant]
  4. GLIPIZIDE (GLIPIZIDE) (5 MILLIGRAM, UNKNOWN) [Concomitant]
  5. METFORMIN (METFORMIN) (500 MILLIGRAM, UNKNOWN) [Concomitant]

REACTIONS (2)
  - Renal failure [None]
  - Cholelithiasis [None]
